FAERS Safety Report 14662883 (Version 1)
Quarter: 2018Q1

REPORT INFORMATION
  Report Type: Spontaneous
  Country: FR (occurrence: FR)
  Receive Date: 20180321
  Receipt Date: 20180321
  Transmission Date: 20180509
  Serious: Yes (Other)
  Sender: FDA-Public Use
  Company Number: FR-MERCK KGAA-2044188

PATIENT
  Sex: Female

DRUGS (1)
  1. NOVOTHYROX [Suspect]
     Active Substance: LEVOTHYROXINE SODIUM
     Indication: PRODUCT USED FOR UNKNOWN INDICATION

REACTIONS (18)
  - Hypoaesthesia oral [None]
  - Asthenia [None]
  - Disturbance in attention [None]
  - Stress [None]
  - Depression [None]
  - Fatigue [None]
  - Muscle fatigue [None]
  - Tongue discolouration [None]
  - Insomnia [None]
  - Apathy [None]
  - Onychoclasis [None]
  - Alopecia [None]
  - Hypersensitivity [None]
  - Migraine [None]
  - Anxiety [None]
  - Loss of personal independence in daily activities [None]
  - Myalgia [None]
  - Loss of libido [None]
